FAERS Safety Report 15612039 (Version 1)
Quarter: 2018Q4

REPORT INFORMATION
  Report Type: Spontaneous
  Country: US (occurrence: US)
  Receive Date: 20181113
  Receipt Date: 20181113
  Transmission Date: 20190205
  Serious: No
  Sender: FDA-Public Use
  Company Number: US-SA-2018SA309040

PATIENT
  Age: 53 Year
  Sex: Female

DRUGS (7)
  1. ASPIRIN [ACETYLSALICYLIC ACID] [Concomitant]
     Active Substance: ASPIRIN
  2. NITROSTAT [Concomitant]
     Active Substance: NITROGLYCERIN
  3. ENALAPRIL [Concomitant]
     Active Substance: ENALAPRIL
  4. GLIMEPIRIDE. [Concomitant]
     Active Substance: GLIMEPIRIDE
  5. PRALUENT [Suspect]
     Active Substance: ALIROCUMAB
     Dosage: 75 MG, QOW
     Route: 058
     Dates: start: 20180815
  6. CARVEDILOL. [Concomitant]
     Active Substance: CARVEDILOL
  7. BRILINTA [Concomitant]
     Active Substance: TICAGRELOR

REACTIONS (1)
  - Vertigo [Unknown]
